FAERS Safety Report 16446607 (Version 3)
Quarter: 2019Q3

REPORT INFORMATION
  Report Type: Report from Study
  Country: GB (occurrence: GB)
  Receive Date: 20190618
  Receipt Date: 20190906
  Transmission Date: 20191004
  Serious: Yes (Other)
  Sender: FDA-Public Use
  Company Number: PHHY2019GB107057

PATIENT
  Age: 73 Year
  Sex: Male
  Weight: 67 kg

DRUGS (4)
  1. HYRIMOZ [Suspect]
     Active Substance: ADALIMUMAB-ADAZ
     Dosage: UNK
     Route: 065
     Dates: start: 20190521
  2. MERCAPTOPURINE. [Concomitant]
     Active Substance: MERCAPTOPURINE
     Indication: CROHN^S DISEASE
     Dosage: 50 MG, QD
     Route: 048
     Dates: start: 20130528
  3. HYRIMOZ [Suspect]
     Active Substance: ADALIMUMAB-ADAZ
     Dosage: 40 MG, Q2W, (0.8ML)
     Route: 058
     Dates: start: 20190308, end: 201905
  4. HYRIMOZ [Suspect]
     Active Substance: ADALIMUMAB-ADAZ
     Indication: CROHN^S DISEASE
     Dosage: 40 MG, Q2W, (0.8ML)
     Route: 058
     Dates: start: 20190308, end: 201905

REACTIONS (4)
  - Fatigue [Unknown]
  - Dyspnoea exertional [Unknown]
  - Haematuria [Recovered/Resolved]
  - Urogenital haemorrhage [Unknown]

NARRATIVE: CASE EVENT DATE: 201903
